FAERS Safety Report 20709549 (Version 1)
Quarter: 2022Q2

REPORT INFORMATION
  Report Type: Other
  Country: IE (occurrence: IE)
  Receive Date: 20220414
  Receipt Date: 20220414
  Transmission Date: 20220721
  Serious: Yes (Other)
  Sender: FDA-Public Use
  Company Number: IE-CELLTRION INC.-2022IE004516

PATIENT

DRUGS (5)
  1. INFLIXIMAB [Suspect]
     Active Substance: INFLIXIMAB
     Indication: Rheumatoid arthritis
     Dosage: 458MG - INTENDED DOSE
     Route: 042
     Dates: start: 20220228
  2. INFLIXIMAB [Suspect]
     Active Substance: INFLIXIMAB
     Indication: Anti-cyclic citrullinated peptide antibody
  3. METHOTREXATE [Concomitant]
     Active Substance: METHOTREXATE
     Dosage: 15 MG EVERY 2 WEEKS
     Route: 048
  4. FOLIC ACID [Concomitant]
     Active Substance: FOLIC ACID
     Dosage: 5 MG EVERY 2 WEEKS
     Route: 048
  5. CITALOPRAM HYDROBROMIDE [Concomitant]
     Active Substance: CITALOPRAM HYDROBROMIDE
     Dosage: 30 MG
     Route: 048

REACTIONS (3)
  - Dizziness [Recovered/Resolved]
  - Pruritus [Recovered/Resolved]
  - Off label use [Unknown]

NARRATIVE: CASE EVENT DATE: 20220228
